FAERS Safety Report 8180893-5 (Version None)
Quarter: 2012Q1

REPORT INFORMATION
  Report Type: 
  Country: None (occurrence: None)
  Receive Date: 20120302
  Receipt Date: 20120217
  Transmission Date: 20120608
  Serious: Yes (Hospitalization)
  Sender: FDA-Public Use
  Company Number: CH-WATSON-2012-03414

PATIENT
  Age: 66 Year
  Sex: Male

DRUGS (4)
  1. TRAMADOL HCL [Suspect]
     Indication: PRODUCT USED FOR UNKNOWN INDICATION
     Dosage: 300 MG, DAILY
     Route: 065
     Dates: start: 20050301
  2. TRAMADOL HCL [Suspect]
     Dosage: ^UNKNOWN DOSES OF 50MG PILLS)
     Route: 065
     Dates: start: 20030801, end: 20040101
  3. MIRTAZAPINE [Concomitant]
     Indication: SLEEP DISORDER
     Dosage: 30 MG, DAILY
     Route: 065
     Dates: start: 20031001
  4. TRAMADOL HCL [Suspect]
     Dosage: 50 MG, DAILY
     Route: 065
     Dates: start: 20040101, end: 20040401

REACTIONS (4)
  - DELIRIUM [None]
  - DRUG INTERACTION [None]
  - OVERDOSE [None]
  - PARKINSONIAN GAIT [None]
